FAERS Safety Report 24915684 (Version 1)
Quarter: 2025Q1

REPORT INFORMATION
  Report Type: Spontaneous
  Country: US (occurrence: US)
  Receive Date: 20250203
  Receipt Date: 20250203
  Transmission Date: 20250409
  Serious: No
  Sender: ALEXION PHARMACEUTICALS
  Company Number: US-AstraZeneca-CH-00795043A

PATIENT
  Age: 50 Year

DRUGS (1)
  1. WAINUA [Suspect]
     Active Substance: EPLONTERSEN
     Indication: Polyneuropathy

REACTIONS (2)
  - Constipation [Not Recovered/Not Resolved]
  - Vitamin A decreased [Not Recovered/Not Resolved]
